FAERS Safety Report 6332870-4 (Version None)
Quarter: 2009Q3

REPORT INFORMATION
  Report Type: 
  Country: None (occurrence: None)
  Receive Date: 20090828
  Receipt Date: 20090820
  Transmission Date: 20100115
  Serious: Yes (Other)
  Sender: FDA-Public Use
  Company Number: BR-ABBOTT-09P-020-0592842-00

PATIENT
  Sex: Male
  Weight: 110 kg

DRUGS (3)
  1. HUMIRA [Suspect]
     Indication: RHEUMATOID ARTHRITIS
     Route: 058
     Dates: start: 20070101
  2. PREDSIM [Concomitant]
     Indication: RHEUMATOID ARTHRITIS
     Route: 048
  3. DIACEREIN [Concomitant]
     Indication: RHEUMATOID ARTHRITIS
     Route: 048

REACTIONS (2)
  - BONE EROSION [None]
  - IMPLANT SITE PAIN [None]
